FAERS Safety Report 6693141-X (Version None)
Quarter: 2010Q2

REPORT INFORMATION
  Report Type: 
  Country: None (occurrence: None)
  Receive Date: 20100422
  Receipt Date: 20100409
  Transmission Date: 20101027
  Serious: Yes (Death)
  Sender: FDA-Public Use
  Company Number: US-WATSON-2010-05076

PATIENT
  Age: 71 Year
  Sex: Female

DRUGS (1)
  1. AMLODIPINE BESYLATE [Suspect]
     Indication: DRUG USE FOR UNKNOWN INDICATION
     Dosage: 27 OF 5 MG TABLETS
     Route: 048

REACTIONS (5)
  - HYPOTENSION [None]
  - INTENTIONAL OVERDOSE [None]
  - OLIGURIA [None]
  - POISONING DELIBERATE [None]
  - RESPIRATORY FAILURE [None]
